FAERS Safety Report 5096802-1 (Version None)
Quarter: 2006Q3

REPORT INFORMATION
  Report Type: 
  Country: None (occurrence: None)
  Receive Date: 20060831
  Receipt Date: 20060824
  Transmission Date: 20061208
  Serious: Yes (Hospitalization)
  Sender: FDA-Public Use
  Company Number: 2006094886

PATIENT
  Age: 70 Year
  Sex: Female
  Weight: 40 kg

DRUGS (6)
  1. AZULFIDINE [Suspect]
     Indication: RHEUMATOID ARTHRITIS
     Dosage: 1000 MG (500 MG, FREQUENCY: BID), ORAL
     Route: 048
     Dates: start: 20050330, end: 20050430
  2. AMOXICILLIN [Concomitant]
  3. PL (PYRIDOXAL) [Concomitant]
  4. OMEPRAZOLE [Concomitant]
  5. TROXSIN (TROXIPIDE) [Concomitant]
  6. ETODOLAC [Concomitant]

REACTIONS (13)
  - CHOLECYSTITIS [None]
  - DRUG HYPERSENSITIVITY [None]
  - EOSINOPHIL COUNT INCREASED [None]
  - ERYTHEMA [None]
  - HUMAN HERPES VIRUS 6 SEROLOGY POSITIVE [None]
  - LIVER DISORDER [None]
  - LYMPHADENOPATHY [None]
  - LYMPHOCYTE MORPHOLOGY ABNORMAL [None]
  - LYMPHOCYTIC INFILTRATION [None]
  - PIGMENTATION DISORDER [None]
  - PYREXIA [None]
  - RASH [None]
  - WHITE BLOOD CELL COUNT INCREASED [None]
